FAERS Safety Report 25998059 (Version 4)
Quarter: 2025Q4

REPORT INFORMATION
  Report Type: Spontaneous
  Country: US (occurrence: US)
  Receive Date: 20251105
  Receipt Date: 20251126
  Transmission Date: 20260117
  Serious: Yes (Other)
  Sender: ROCHE
  Company Number: US-ROCHE-10000425908

PATIENT
  Age: 44 Year
  Sex: Female
  Weight: 74.84 kg

DRUGS (16)
  1. XOLAIR [Suspect]
     Active Substance: OMALIZUMAB
     Indication: Mast cell activation syndrome
     Dosage: DOSE: 150 MG AND 300 MG
     Route: 058
     Dates: start: 20250829
  2. XOLAIR [Suspect]
     Active Substance: OMALIZUMAB
     Indication: Urticaria
     Route: 058
     Dates: start: 20251024
  3. XOLAIR [Suspect]
     Active Substance: OMALIZUMAB
     Indication: Chronic spontaneous urticaria
     Dosage: STRENGTH 300 MG/2ML
     Route: 058
     Dates: start: 20251023
  4. METHOCARBAMOL [Concomitant]
     Active Substance: METHOCARBAMOL
     Indication: Ehlers-Danlos syndrome
  5. METHOCARBAMOL [Concomitant]
     Active Substance: METHOCARBAMOL
  6. MAGNESIUM [Concomitant]
     Active Substance: MAGNESIUM
     Indication: Supplementation therapy
     Dosage: EVERY MORNING AND EVENING
  7. PROBIOTICS NOS [Concomitant]
     Active Substance: PROBIOTICS NOS
     Dosage: EVERY MORNING AND EVENING
  8. Women?s Multivitamin [Concomitant]
     Dosage: EVERY NIGHT
  9. VITAMIN D [Concomitant]
     Active Substance: VITAMIN D NOS
  10. FISH OIL [Concomitant]
     Active Substance: FISH OIL
     Dosage: EVERY NIGHT
  11. IBUPROFEN [Concomitant]
     Active Substance: IBUPROFEN
     Route: 048
  12. zolpidem  10 mg [Concomitant]
  13. valtrex 1g [Concomitant]
  14. TACROLIMUS [Concomitant]
     Active Substance: TACROLIMUS
  15. TRIAMCINOLONE [Concomitant]
     Active Substance: TRIAMCINOLONE
  16. tylenol 500 mg E/s [Concomitant]

REACTIONS (3)
  - Anaphylactic reaction [Not Recovered/Not Resolved]
  - Vitamin D decreased [Unknown]
  - Pain in extremity [Unknown]

NARRATIVE: CASE EVENT DATE: 20251025
